FAERS Safety Report 20149879 (Version 1)
Quarter: 2021Q4

REPORT INFORMATION
  Report Type: Spontaneous
  Country: US (occurrence: US)
  Receive Date: 20211206
  Receipt Date: 20211206
  Transmission Date: 20220303
  Serious: Yes (Life-Threatening, Hospitalization)
  Sender: FDA-Public Use
  Company Number: US-JNJFOC-20211153958

PATIENT
  Age: 33 Year
  Sex: Female
  Weight: 76 kg

DRUGS (4)
  1. TYLENOL PM [Suspect]
     Active Substance: ACETAMINOPHEN\DIPHENHYDRAMINE
     Indication: Suicide attempt
     Dosage: (ACETAMINOPHEN 500 MG/DIPHENHYDRAMINE HYDROCHLORIDE 25) TABLETS INGESTING A TOTAL AMOUNT OF ACETAMIN
     Route: 048
     Dates: start: 20000830, end: 20000830
  2. ZOLOFT [Concomitant]
     Active Substance: SERTRALINE HYDROCHLORIDE
     Indication: Product used for unknown indication
     Dosage: 200 MG/DAY FOR 6 MONTHS
     Route: 065
     Dates: end: 20000820
  3. WELLBUTRIN [Concomitant]
     Active Substance: BUPROPION HYDROCHLORIDE
     Indication: Product used for unknown indication
     Dosage: 350 MG/DAY FOR 6 MONTHS
     Route: 065
     Dates: end: 20000820
  4. DIPHENHYDRAMINE [Concomitant]
     Active Substance: DIPHENHYDRAMINE
     Indication: Product used for unknown indication
     Route: 065
     Dates: start: 20000830, end: 20000830

REACTIONS (4)
  - Suicide attempt [Recovered/Resolved]
  - Intentional overdose [Recovered/Resolved]
  - Acute hepatic failure [Recovered/Resolved]
  - Acute kidney injury [Recovered/Resolved]
